FAERS Safety Report 4642000-2 (Version None)
Quarter: 2005Q2

REPORT INFORMATION
  Report Type: 
  Country: None (occurrence: None)
  Receive Date: 20050420
  Receipt Date: 20050331
  Transmission Date: 20051028
  Serious: Yes (Hospitalization)
  Sender: FDA-Public Use
  Company Number: USA050494836

PATIENT
  Age: 77 Year
  Sex: Female
  Weight: 43 kg

DRUGS (12)
  1. FORTEO [Suspect]
     Indication: OSTEOPOROSIS
     Dates: start: 20050214
  2. LASIX [Concomitant]
  3. FORADIL(FORMOTEROL0 [Concomitant]
  4. SPIRIVA [Concomitant]
  5. PREDNISONE [Concomitant]
  6. TENEX [Concomitant]
  7. COREG [Concomitant]
  8. PULMICORT [Concomitant]
  9. SPIRONOLACTONE [Concomitant]
  10. LANOXIN(DIGOXIN-SANDOZ) [Concomitant]
  11. PREVACID [Concomitant]
  12. ALBUTEROL [Concomitant]

REACTIONS (4)
  - DEHYDRATION [None]
  - HYPERKALAEMIA [None]
  - PHARMACEUTICAL PRODUCT COMPLAINT [None]
  - RENAL FAILURE ACUTE [None]
